FAERS Safety Report 8902080 (Version 1)
Quarter: 2012Q4

REPORT INFORMATION
  Report Type: Report from Study
  Country: GB (occurrence: GB)
  Receive Date: 20121112
  Receipt Date: 20121112
  Transmission Date: 20130627
  Serious: Yes (Other)
  Sender: FDA-Public Use
  Company Number: GB-ROCHE-1152607

PATIENT
  Sex: Female

DRUGS (5)
  1. RITUXIMAB [Suspect]
     Indication: RHEUMATOID ARTHRITIS
     Route: 050
     Dates: start: 20090804, end: 20090922
  2. TOCILIZUMAB [Suspect]
     Indication: PRODUCT USED FOR UNKNOWN INDICATION
     Route: 050
     Dates: start: 20110125, end: 20110403
  3. METHOTREXATE [Concomitant]
  4. AMOXICILLIN [Concomitant]
  5. CIPROFLOXACIN [Concomitant]

REACTIONS (5)
  - Non-small cell lung cancer [Unknown]
  - Chronic obstructive pulmonary disease [Unknown]
  - Small intestinal obstruction [Unknown]
  - Abdominal adhesions [Unknown]
  - Drug ineffective [Unknown]
